FAERS Safety Report 9363845 (Version 2)
Quarter: 2014Q2

REPORT INFORMATION
  Report Type: Spontaneous
  Country: US (occurrence: US)
  Receive Date: 20130624
  Receipt Date: 20140402
  Transmission Date: 20141212
  Serious: Yes (Other)
  Sender: FDA-Public Use
  Company Number: US-PFIZER INC-2013185337

PATIENT
  Age: 64 Year
  Sex: Female
  Weight: 65.76 kg

DRUGS (22)
  1. CELEBREX [Suspect]
     Indication: RHEUMATOID ARTHRITIS
     Dosage: UNK
     Route: 048
  2. CELEBREX [Suspect]
     Dosage: 200 MG, 1X/DAY
     Route: 048
     Dates: start: 20120108
  3. ZOLOFT [Concomitant]
     Dosage: UNK
  4. PLAQUENIL [Concomitant]
     Dosage: 200 MG, 1X/DAY
  5. AMITIZA [Concomitant]
     Dosage: 24 UG, 2X/DAY
     Route: 048
     Dates: start: 20140228
  6. ECONAZOLE NITRATE [Concomitant]
     Dosage: 1 %, UNK
     Dates: start: 20140217
  7. FLUTICASONE PROPIONATE [Concomitant]
     Dosage: 50MG/ACT NASAL SUSPENSION, 1 SPRAY EACH NOSTRIL DAILY
     Route: 045
     Dates: start: 20120102
  8. HYDROXYCHLOROQUINE SULFATE [Concomitant]
     Dosage: 200 MG, 2X/DAY
     Route: 048
     Dates: start: 20130624
  9. LEVOTHYROXINE SODIUM [Concomitant]
     Dosage: 88 UG, 1X/DAY
     Route: 048
     Dates: start: 20120108
  10. LITHIUM CARBONATE [Concomitant]
     Dosage: 300 MG, 2X/DAY
     Route: 048
     Dates: start: 20120113
  11. MESTINON [Concomitant]
     Dosage: 60 MG, 4X/DAY
     Route: 048
     Dates: start: 20140219
  12. MONTELUKAST SODIUM [Concomitant]
     Dosage: 10 MG, UNK
     Route: 048
     Dates: start: 20120810
  13. MYCOPHENOLATE MOFETIL [Concomitant]
     Dosage: 500 MG, UNK
     Route: 048
     Dates: start: 20120312
  14. NYSTATIN/TRIAMCINOLONE [Concomitant]
     Dosage: 100000-0.1 UNIT/GM-%
     Route: 061
     Dates: start: 20120301
  15. OXYBUTYNIN CHLORIDE [Concomitant]
     Dosage: 5 MG, 4X/DAY
     Route: 048
     Dates: start: 20121002
  16. PROCHLORPERAZINE MALEATE [Concomitant]
     Dosage: 10 MG, DAILY
     Route: 048
     Dates: start: 20120108
  17. PYRIDOSTIGMINE BROMIDE [Concomitant]
     Dosage: UNK
  18. SERTRALINE HYDROCHLORIDE [Concomitant]
     Dosage: 1 + 1/2 TABLETS BY MOUTH IN THE MORNING
     Route: 048
     Dates: start: 20120101
  19. TRAMADOL HYDROCHLORIDE [Concomitant]
     Indication: PAIN
     Dosage: 100 MG, 4X/DAY AS NEEDED FOR PAIN
     Route: 048
     Dates: start: 20111223
  20. TRIAMCINOLONE ACETONIDE [Concomitant]
     Dosage: 0.1 %, UNK
     Dates: start: 20120105
  21. TRIAMCINOLONE ACETONIDE [Concomitant]
     Dosage: 0.1 %, UNK
     Dates: start: 20140217
  22. ZALEPLON [Concomitant]
     Dosage: 5 MG, UNK
     Route: 048
     Dates: start: 20120117

REACTIONS (1)
  - Upper limb fracture [Unknown]
